FAERS Safety Report 8776086 (Version 1)
Quarter: 2012Q4

REPORT INFORMATION
  Report Type: 
  Country: US (occurrence: US)
  Receive Date: 20120910
  Receipt Date: 20120910
  Transmission Date: 20130627
  Serious: Yes (Death)
  Sender: FDA-Public Use
  Company Number: US-TEVA-357810USA

PATIENT
  Age: 47 Year
  Sex: Male

DRUGS (3)
  1. NUVIGIL [Suspect]
     Route: 048
  2. NORCO [Concomitant]
  3. MULTIPLE BLOOD PRESSURE MEDS [Concomitant]

REACTIONS (1)
  - Death [Fatal]
